FAERS Safety Report 6309807-7 (Version None)
Quarter: 2009Q3

REPORT INFORMATION
  Report Type: 
  Country: None (occurrence: None)
  Receive Date: 20090811
  Receipt Date: 20090626
  Transmission Date: 20100115
  Serious: No
  Sender: FDA-Public Use
  Company Number: 1000007068

PATIENT
  Age: 56 Year
  Sex: Female

DRUGS (6)
  1. SAVELLA [Suspect]
     Dosage: 12.5 MG (12.5 MG, 1 IN 1 D), ORAL; 25 MG (12.5 MG, 2 IN 1 D), ORAL; 50 MG (25 MG,2 IN 1 D), ORAL
     Route: 048
     Dates: start: 20090518, end: 20090518
  2. SAVELLA [Suspect]
     Dosage: 12.5 MG (12.5 MG, 1 IN 1 D), ORAL; 25 MG (12.5 MG, 2 IN 1 D), ORAL; 50 MG (25 MG,2 IN 1 D), ORAL
     Route: 048
     Dates: start: 20090519, end: 20090520
  3. SAVELLA [Suspect]
     Dosage: 12.5 MG (12.5 MG, 1 IN 1 D), ORAL; 25 MG (12.5 MG, 2 IN 1 D), ORAL; 50 MG (25 MG,2 IN 1 D), ORAL
     Route: 048
     Dates: start: 20090521, end: 20090524
  4. SAVELLA [Suspect]
     Indication: FIBROMYALGIA
     Dosage: 50 MG, (50 MG, 2 IN 1 D), ORAL
     Route: 048
     Dates: start: 20090525, end: 20090615
  5. TAMIFLU [Suspect]
     Indication: INFLUENZA LIKE ILLNESS
     Dosage: (2 IN 1 D), ORAL
     Route: 048
     Dates: start: 20090612, end: 20090614
  6. FLEXERIL [Concomitant]

REACTIONS (2)
  - INFLUENZA LIKE ILLNESS [None]
  - RASH [None]
